FAERS Safety Report 5055564-4 (Version None)
Quarter: 2006Q3

REPORT INFORMATION
  Report Type: 
  Country: None (occurrence: None)
  Receive Date: 20060714
  Receipt Date: 20060703
  Transmission Date: 20061208
  Serious: Yes (Other)
  Sender: FDA-Public Use
  Company Number: 234194K06USA

PATIENT
  Age: 58 Year
  Sex: Female

DRUGS (4)
  1. REBIF [Suspect]
     Indication: MULTIPLE SCLEROSIS
     Dosage: 44 MCG, 3 IN 1 WEEKS, SUBCUTANEOUS
     Route: 058
     Dates: start: 20051208
  2. EVISTA [Concomitant]
  3. ASPIRIN TAB [Concomitant]
  4. ENABLEX (DARIFENACIN) [Concomitant]

REACTIONS (6)
  - CHOLELITHIASIS [None]
  - CYSTITIS [None]
  - FATIGUE [None]
  - HAEMATURIA [None]
  - INJECTION SITE BRUISING [None]
  - SPLENIC ARTERY ANEURYSM [None]
